FAERS Safety Report 20748566 (Version 1)
Quarter: 2022Q2

REPORT INFORMATION
  Report Type: Spontaneous
  Country: US (occurrence: None)
  Receive Date: 20220426
  Receipt Date: 20220426
  Transmission Date: 20220721
  Serious: Yes (Other)
  Sender: FDA-Public Use
  Company Number: US-VistaPharm, Inc.-VER202204-000356

PATIENT
  Age: 48 Year
  Sex: Male

DRUGS (4)
  1. MYCOPHENOLATE MOFETIL [Suspect]
     Active Substance: MYCOPHENOLATE MOFETIL
     Indication: Immunosuppression
     Dosage: UNKNOWN
     Route: 065
  2. THYMOGLOBULIN [Concomitant]
     Active Substance: LAPINE T-LYMPHOCYTE IMMUNE GLOBULIN
     Indication: Transplant rejection
     Dosage: UNKNOWN
     Route: 065
  3. BORTEZOMIB [Concomitant]
     Active Substance: BORTEZOMIB
     Indication: Transplant rejection
     Dosage: UNKNOWN
     Route: 065
  4. RITUXIMAB [Concomitant]
     Active Substance: RITUXIMAB
     Indication: Transplant rejection
     Dosage: UNKNOWN
     Route: 065

REACTIONS (4)
  - Cardiogenic shock [Recovered/Resolved]
  - Microvascular coronary artery disease [Recovered/Resolved]
  - COVID-19 [Unknown]
  - Drug ineffective [Unknown]
